FAERS Safety Report 5427735-6 (Version None)
Quarter: 2007Q3

REPORT INFORMATION
  Report Type: 
  Country: None (occurrence: None)
  Receive Date: 20070823
  Receipt Date: 20070711
  Transmission Date: 20080115
  Serious: Yes (Other)
  Sender: FDA-Public Use
  Company Number: 07-135

PATIENT
  Age: 78 Year
  Sex: Female
  Weight: 68.0396 kg

DRUGS (5)
  1. ALEVE [Suspect]
     Indication: ARTHRITIS
     Dosage: 440 MG, DAILY, ORAL
     Route: 048
     Dates: start: 20070525, end: 20070529
  2. ALEVE [Suspect]
     Indication: PAIN MANAGEMENT
     Dosage: 440 MG, DAILY, ORAL
     Route: 048
     Dates: start: 20070525, end: 20070529
  3. COUMADIN [Concomitant]
  4. SPRING VALLEY VITAMINS [Concomitant]
  5. DIURETIC [Concomitant]

REACTIONS (1)
  - PROTHROMBIN LEVEL INCREASED [None]
